FAERS Safety Report 13063179 (Version 3)
Quarter: 2017Q1

REPORT INFORMATION
  Report Type: Spontaneous
  Country: FI (occurrence: FI)
  Receive Date: 20161227
  Receipt Date: 20170112
  Transmission Date: 20170428
  Serious: Yes (Other)
  Sender: FDA-Public Use
  Company Number: FI-AMGEN-FINSP2016182593

PATIENT
  Age: 66 Year
  Sex: Male
  Weight: 75 kg

DRUGS (34)
  1. KYPROLIS [Suspect]
     Active Substance: CARFILZOMIB
     Indication: AMYLOIDOSIS
     Dosage: 38 MG, 30 ML INFUSION
     Route: 042
     Dates: start: 20160921, end: 20160921
  2. KYPROLIS [Suspect]
     Active Substance: CARFILZOMIB
     Dosage: 109 MG, 30 ML INFUSION
     Route: 042
     Dates: start: 20161101
  3. DEXAMETHASONE. [Concomitant]
     Active Substance: DEXAMETHASONE
     Dosage: 10.5 MG,
     Route: 048
     Dates: start: 20161129, end: 20161130
  4. KYPROLIS [Suspect]
     Active Substance: CARFILZOMIB
     Dosage: 109 MG, 30 ML INFUSION
     Route: 042
     Dates: start: 20161025, end: 20161026
  5. KYPROLIS [Suspect]
     Active Substance: CARFILZOMIB
     Dosage: 109 MG
     Route: 042
     Dates: start: 20161122, end: 20161122
  6. KYPROLIS [Suspect]
     Active Substance: CARFILZOMIB
     Dosage: 109 MG, UNK
     Route: 042
     Dates: start: 20161129, end: 20161130
  7. DEXAMETHASONE. [Concomitant]
     Active Substance: DEXAMETHASONE
     Dosage: 19.5 MG,
     Route: 048
     Dates: start: 20161025, end: 20161026
  8. DEXAMETHASONE. [Concomitant]
     Active Substance: DEXAMETHASONE
     Dosage: 10.5 MG
     Route: 048
     Dates: start: 20161108, end: 20161109
  9. COTRIM FORTE [Concomitant]
     Active Substance: SULFAMETHOXAZOLE\TRIMETHOPRIM
     Dosage: 1 DF, 1 X1 ( ON MONDAY, WEDNESDAY AND FRIDAY)
     Dates: start: 20160920
  10. KYPROLIS [Suspect]
     Active Substance: CARFILZOMIB
     Dosage: 109 MG, 30 ML INFUSION
     Route: 042
     Dates: start: 20161018, end: 20161019
  11. DEXAMETHASONE. [Concomitant]
     Active Substance: DEXAMETHASONE
     Dosage: 19.5 MG,
     Route: 048
     Dates: start: 20161018, end: 20161019
  12. DEXAMETHASONE. [Concomitant]
     Active Substance: DEXAMETHASONE
     Dosage: 10.5 MG,
     Route: 048
     Dates: start: 20161101, end: 20161102
  13. DIFORMIN [Concomitant]
     Active Substance: METFORMIN HYDROCHLORIDE
     Dosage: UNK, 1 X 2
     Dates: start: 20130614
  14. KYPROLIS [Suspect]
     Active Substance: CARFILZOMIB
     Indication: PLASMA CELL MYELOMA
     Dosage: 60 MG, UNK
     Route: 042
     Dates: start: 20160920
  15. KYPROLIS [Suspect]
     Active Substance: CARFILZOMIB
     Dosage: 109 MG, 30 ML INFUSION
     Route: 042
     Dates: start: 20160927, end: 20160928
  16. KYPROLIS [Suspect]
     Active Substance: CARFILZOMIB
     Dosage: 109 MG, UNK
     Route: 042
     Dates: start: 20161214, end: 20161220
  17. DEXAMETHASONE. [Concomitant]
     Active Substance: DEXAMETHASONE
     Dosage: 19.5 MG,
     Route: 048
     Dates: start: 20161011, end: 20161012
  18. DEXAMETHASONE. [Concomitant]
     Active Substance: DEXAMETHASONE
     Dosage: 19.5 MG,
     Route: 048
     Dates: start: 20161213, end: 20161214
  19. RASAGILIN [Concomitant]
     Dosage: UNK, 1 X 1
  20. COHEMIN [Concomitant]
     Dosage: UNK
  21. KYPROLIS [Suspect]
     Active Substance: CARFILZOMIB
     Dosage: 109 MG
     Route: 042
     Dates: start: 20161004, end: 20161005
  22. KYPROLIS [Suspect]
     Active Substance: CARFILZOMIB
     Dosage: 109 MG, 30 ML INFUSION
     Route: 042
     Dates: start: 20161102, end: 20161102
  23. KYPROLIS [Suspect]
     Active Substance: CARFILZOMIB
     Dosage: 109 MG, 30 ML INFUSION
     Route: 042
     Dates: start: 20161115, end: 20161116
  24. KYPROLIS [Suspect]
     Active Substance: CARFILZOMIB
     Dosage: 109 MG
     Route: 042
     Dates: start: 20161123, end: 20161123
  25. DEXAMETHASONE. [Concomitant]
     Active Substance: DEXAMETHASONE
     Dosage: 10.5 MG,
     Route: 048
     Dates: start: 20161115, end: 20161116
  26. DEXAMETHASONE. [Concomitant]
     Active Substance: DEXAMETHASONE
     Dosage: 10.5 MG, UNK
     Route: 048
     Dates: start: 20161122, end: 20161123
  27. DEXAMETHASONE. [Concomitant]
     Active Substance: DEXAMETHASONE
     Dosage: UNK
     Dates: start: 201609
  28. DEXAMETHASONE. [Concomitant]
     Active Substance: DEXAMETHASONE
     Dosage: 19.5 MG, UNK
     Route: 048
     Dates: start: 20160920, end: 20160921
  29. DEXAMETHASONE. [Concomitant]
     Active Substance: DEXAMETHASONE
     Dosage: 19.5 MG,
     Route: 048
     Dates: start: 20161004, end: 20161005
  30. DEXAMETHASONE. [Concomitant]
     Active Substance: DEXAMETHASONE
     Dosage: 19.5 MG
     Route: 048
     Dates: start: 20160927, end: 20160928
  31. KYPROLIS [Suspect]
     Active Substance: CARFILZOMIB
     Dosage: 109 MG, UNK
     Route: 042
     Dates: start: 20161213, end: 20161213
  32. DEXAMETHASONE. [Concomitant]
     Active Substance: DEXAMETHASONE
     Dosage: 10.5 MG, UNK
     Route: 048
     Dates: start: 20161207, end: 20161208
  33. ACYRAX [Concomitant]
     Dosage: UNK,1/2 X 2
     Dates: start: 20160920
  34. SINEMET [Concomitant]
     Active Substance: CARBIDOPA\LEVODOPA
     Dosage: UNK, 1 X 1-3
     Dates: start: 20140812

REACTIONS (7)
  - Mean cell volume increased [Unknown]
  - Platelet count abnormal [Unknown]
  - Low density lipoprotein abnormal [Unknown]
  - Reticulocyte count abnormal [Unknown]
  - Haemolysis [Recovering/Resolving]
  - Off label use [Unknown]
  - Haemoglobin decreased [Recovering/Resolving]

NARRATIVE: CASE EVENT DATE: 2016
